FAERS Safety Report 8819436 (Version 1)
Quarter: 2012Q4

REPORT INFORMATION
  Report Type: 
  Country: US (occurrence: US)
  Receive Date: 20121001
  Receipt Date: 20121001
  Transmission Date: 20130627
  Serious: No
  Sender: FDA-Public Use
  Company Number: US-009507513-1209USA009984

PATIENT
  Sex: Female

DRUGS (3)
  1. REBETOL [Suspect]
     Indication: HEPATITIS C
     Dosage: UNK
     Dates: start: 20111021
  2. VICTRELIS [Suspect]
     Indication: HEPATITIS C
     Dosage: UNK
     Dates: start: 20111118, end: 20120831
  3. PEGASYS [Concomitant]
     Indication: HEPATITIS C
     Dosage: UNK

REACTIONS (4)
  - Alopecia [Unknown]
  - Rash [Unknown]
  - Musculoskeletal discomfort [Unknown]
  - Bone disorder [Unknown]
